FAERS Safety Report 25576882 (Version 1)
Quarter: 2025Q3

REPORT INFORMATION
  Report Type: Spontaneous
  Country: US (occurrence: None)
  Receive Date: 20250718
  Receipt Date: 20250718
  Transmission Date: 20251021
  Serious: Yes (Hospitalization)
  Sender: FDA-CTU
  Company Number: None

PATIENT
  Age: 57 Year
  Sex: Female
  Weight: 74.4 kg

DRUGS (1)
  1. PEMBROLIZUMAB [Suspect]
     Active Substance: PEMBROLIZUMAB
     Dates: end: 20250619

REACTIONS (8)
  - Dyspnoea [None]
  - Haemoglobin decreased [None]
  - Haptoglobin decreased [None]
  - Blood lactate dehydrogenase increased [None]
  - Blood bilirubin increased [None]
  - Bilirubin conjugated increased [None]
  - Aortic valve calcification [None]
  - Mitral valve thickening [None]

NARRATIVE: CASE EVENT DATE: 20250624
